FAERS Safety Report 8772758 (Version 1)
Quarter: 2012Q4

REPORT INFORMATION
  Report Type: 
  Country: VE (occurrence: VE)
  Receive Date: 20120907
  Receipt Date: 20120907
  Transmission Date: 20130627
  Serious: Yes (Death, Hospitalization)
  Sender: FDA-Public Use
  Company Number: VE-SANOFI-AVENTIS-2012SA062498

PATIENT
  Age: 94 Year
  Sex: Female

DRUGS (6)
  1. PLAVIX [Suspect]
     Indication: MYOCARDIAL INFARCTION
     Route: 048
     Dates: start: 2002, end: 201204
  2. PLAVIX [Suspect]
     Route: 048
     Dates: start: 2002, end: 201204
  3. ASPIRIN [Concomitant]
     Indication: DRUG USE FOR UNKNOWN INDICATION
  4. DIGOXIN [Concomitant]
     Indication: DRUG USE FOR UNKNOWN INDICATION
  5. STUGERON [Concomitant]
     Indication: DRUG USE FOR UNKNOWN INDICATION
  6. FOLIC ACID [Concomitant]
     Indication: DRUG USE FOR UNKNOWN INDICATION

REACTIONS (2)
  - Death [Fatal]
  - Gastrointestinal haemorrhage [Unknown]
